FAERS Safety Report 9093272 (Version 1)
Quarter: 2013Q1

REPORT INFORMATION
  Report Type: Spontaneous
  Country: DE (occurrence: DE)
  Receive Date: 20130201
  Receipt Date: 20130201
  Transmission Date: 20140127
  Serious: Yes (Other)
  Sender: FDA-Public Use
  Company Number: DE-ROCHE-1168194

PATIENT
  Sex: Female
  Weight: 67 kg

DRUGS (4)
  1. LARIAM [Suspect]
     Indication: MALARIA PROPHYLAXIS
     Route: 048
  2. LARIAM [Suspect]
     Dosage: HALF TABLET
     Route: 048
     Dates: end: 20130102
  3. L-THYROXIN 100 [Concomitant]
     Indication: HYPOTHYROIDISM
     Route: 048
     Dates: start: 2003
  4. LIVIELLA [Concomitant]
     Indication: MENOPAUSAL SYMPTOMS
     Route: 048
     Dates: start: 2011

REACTIONS (3)
  - Vertigo [Recovered/Resolved]
  - Nausea [Recovered/Resolved]
  - Gait disturbance [Recovered/Resolved]
